FAERS Safety Report 4876787-0 (Version None)
Quarter: 2006Q1

REPORT INFORMATION
  Report Type: 
  Country: None (occurrence: None)
  Receive Date: 20060110
  Receipt Date: 20060103
  Transmission Date: 20060701
  Serious: Yes (Death, Hospitalization)
  Sender: FDA-Public Use
  Company Number: US-MERCK-0601USA00453

PATIENT
  Age: 79 Year
  Sex: Male

DRUGS (9)
  1. VIOXX [Suspect]
     Route: 048
  2. CENTRUM SILVER [Concomitant]
     Route: 065
  3. NORVASC [Concomitant]
     Route: 048
  4. CARBAMAZEPINE [Concomitant]
     Route: 065
  5. LIPITOR [Concomitant]
     Route: 065
  6. LASIX [Concomitant]
     Route: 065
  7. ASPIRIN [Concomitant]
     Route: 065
  8. VITAMIN E [Concomitant]
     Route: 065
  9. [COMPOSITION UNSPECIFIED] [Concomitant]
     Route: 065

REACTIONS (5)
  - AORTIC ANEURYSM RUPTURE [None]
  - CARDIAC ARREST [None]
  - CATARACT [None]
  - HYPOVOLAEMIA [None]
  - SHOCK [None]
